FAERS Safety Report 26076625 (Version 1)
Quarter: 2025Q4

REPORT INFORMATION
  Report Type: Spontaneous
  Country: EU (occurrence: EU)
  Receive Date: 20251121
  Receipt Date: 20251121
  Transmission Date: 20260117
  Serious: Yes (Hospitalization)
  Sender: GALPHARM INTERNATIONAL
  Company Number: EU-MLMSERVICE-20251105-PI698766-00029-1

PATIENT
  Age: 50 Year
  Sex: Male

DRUGS (1)
  1. ACETAMINOPHEN [Suspect]
     Active Substance: ACETAMINOPHEN
     Indication: Product used for unknown indication
     Dosage: 15 G, TOTAL
     Route: 048

REACTIONS (4)
  - Acute kidney injury [Unknown]
  - Transaminases increased [Recovering/Resolving]
  - Accidental overdose [Unknown]
  - Toxicity to various agents [Recovered/Resolved]
